FAERS Safety Report 8109627-7 (Version None)
Quarter: 2012Q1

REPORT INFORMATION
  Report Type: 
  Country: None (occurrence: None)
  Receive Date: 20120202
  Receipt Date: 20120116
  Transmission Date: 20120608
  Serious: Yes (Hospitalization)
  Sender: FDA-Public Use
  Company Number: CHPA2012US002291

PATIENT
  Sex: Female

DRUGS (2)
  1. EXCEDRIN MIGRAINE CAPLETS [Suspect]
     Indication: MIGRAINE
     Dosage: UNK, UNK
     Route: 048
     Dates: end: 20120101
  2. EXCEDRIN PM CAPLETS [Suspect]
     Dosage: UNK, UNK
     Route: 048
     Dates: end: 20120101

REACTIONS (2)
  - HAEMORRHAGE [None]
  - HIATUS HERNIA [None]
